FAERS Safety Report 11659953 (Version 1)
Quarter: 2015Q4

REPORT INFORMATION
  Report Type: Spontaneous
  Country: US (occurrence: None)
  Receive Date: 20151023
  Receipt Date: 20151023
  Transmission Date: 20160304
  Serious: No
  Sender: FDA-Public Use
  Company Number: None

PATIENT
  Age: 60 Year
  Sex: Female
  Weight: 58.97 kg

DRUGS (3)
  1. CALCIUM CITRATE [Concomitant]
     Active Substance: CALCIUM CITRATE
  2. MELOXICAM. [Suspect]
     Active Substance: MELOXICAM
     Indication: INFLAMMATION
     Dosage: ONCE
     Route: 048
  3. MAGNESIUM [Concomitant]
     Active Substance: MAGNESIUM

REACTIONS (4)
  - Dizziness [None]
  - Activities of daily living impaired [None]
  - Pollakiuria [None]
  - Abdominal discomfort [None]

NARRATIVE: CASE EVENT DATE: 20150820
